FAERS Safety Report 10418249 (Version 1)
Quarter: 2014Q3

REPORT INFORMATION
  Report Type: Spontaneous
  Country: FR (occurrence: FR)
  Receive Date: 20140829
  Receipt Date: 20140829
  Transmission Date: 20150326
  Serious: Yes (Hospitalization)
  Sender: FDA-Public Use
  Company Number: FR-SA-2014SA115508

PATIENT
  Age: 60 Year
  Sex: Female

DRUGS (10)
  1. RIFADINE [Suspect]
     Active Substance: RIFAMPIN
     Indication: TUBERCULOSIS
     Dosage: ROUTE: INFUSION
     Dates: start: 20140625, end: 20140713
  2. RIMIFON [Suspect]
     Active Substance: ISONIAZID
     Indication: TUBERCULOSIS
     Dosage: ROUTE: INFUSION
     Dates: start: 20140625, end: 20140713
  3. RIFADINE [Suspect]
     Active Substance: RIFAMPIN
     Indication: TUBERCULOSIS
     Dosage: ROUTE: INFUSION,?DOSE: PROGRESSIVE DOSE
     Dates: start: 20140723
  4. RIMIFON [Suspect]
     Active Substance: ISONIAZID
     Indication: TUBERCULOSIS
     Dosage: ROUTE: INFUSION
     Dates: start: 20140722, end: 20140722
  5. MYAMBUTOL [Concomitant]
     Active Substance: ETHAMBUTOL HYDROCHLORIDE
     Dates: start: 20140625
  6. RIMIFON [Suspect]
     Active Substance: ISONIAZID
     Indication: TUBERCULOSIS
     Route: 048
     Dates: start: 20140713
  7. RIFADINE [Suspect]
     Active Substance: RIFAMPIN
     Indication: TUBERCULOSIS
     Dosage: ROUTE: INFUSION
     Route: 048
     Dates: start: 20140713
  8. RIFADINE [Suspect]
     Active Substance: RIFAMPIN
     Indication: TUBERCULOSIS
     Dosage: ROUTE: INFUSION
     Dates: start: 20140722, end: 20140722
  9. PIRILENE [Concomitant]
     Active Substance: PYRAZINAMIDE
     Dates: start: 20140625
  10. RIMIFON [Suspect]
     Active Substance: ISONIAZID
     Indication: TUBERCULOSIS
     Dosage: ROUTE: INFUSION,?DOSE: PROGRESSIVE DOSE
     Dates: start: 20140723

REACTIONS (1)
  - Influenza like illness [Recovered/Resolved]

NARRATIVE: CASE EVENT DATE: 20140707
